FAERS Safety Report 14509314 (Version 1)
Quarter: 2018Q1

REPORT INFORMATION
  Report Type: Spontaneous
  Country: DK (occurrence: DK)
  Receive Date: 20180209
  Receipt Date: 20180209
  Transmission Date: 20180509
  Serious: Yes (Other)
  Sender: FDA-Public Use
  Company Number: DK-AMGEN-DNKSP2018014969

PATIENT
  Age: 51 Year
  Sex: Male
  Weight: 92.5 kg

DRUGS (4)
  1. IBUMETIN [Concomitant]
     Active Substance: IBUPROFEN
     Indication: PAIN
     Dosage: 400 MG, AS NECESSARY (TABLET WHEN NEEDED, MAXIMUM 3 TABLETS PER DAY)
     Route: 048
  2. TRADOLAN [Concomitant]
     Active Substance: TRAMADOL
     Indication: PAIN
     Dosage: 300 MG, UNK
     Route: 048
     Dates: start: 20160204
  3. PARSABIV [Suspect]
     Active Substance: ETELCALCETIDE HYDROCHLORIDE
     Indication: CALCIUM METABOLISM DISORDER
     Dosage: 2.5 MG (AT DIALYSIS), UNK
     Route: 042
     Dates: start: 20180102, end: 20180122
  4. VENOFER [Concomitant]
     Active Substance: IRON SUCROSE
     Indication: IRON DEFICIENCY
     Dosage: 100 MG (20 MG/ML), UNK
     Route: 042
     Dates: start: 20170907

REACTIONS (2)
  - Coordination abnormal [Recovered/Resolved]
  - Loss of consciousness [Recovered/Resolved]

NARRATIVE: CASE EVENT DATE: 20180115
